FAERS Safety Report 16280489 (Version 1)
Quarter: 2019Q2

REPORT INFORMATION
  Report Type: Spontaneous
  Country: US (occurrence: US)
  Receive Date: 20190402
  Receipt Date: 20190402
  Transmission Date: 20190711
  Serious: No
  Sender: FDA-Public Use
  Company Number: None

PATIENT
  Age: 56 Year
  Sex: Female

DRUGS (1)
  1. GAMUNEX-C [Suspect]
     Active Substance: HUMAN IMMUNOGLOBULIN G
     Indication: IMMUNODEFICIENCY COMMON VARIABLE
     Dosage: ?          OTHER FREQUENCY:EVERY OTHER DAY ;?
     Route: 058
     Dates: start: 20190125

REACTIONS (3)
  - Sinusitis [None]
  - Joint swelling [None]
  - Headache [None]

NARRATIVE: CASE EVENT DATE: 20190315
